FAERS Safety Report 7609487-4 (Version None)
Quarter: 2011Q3

REPORT INFORMATION
  Report Type: 
  Country: None (occurrence: None)
  Receive Date: 20110714
  Receipt Date: 20110630
  Transmission Date: 20111222
  Serious: Yes (Hospitalization)
  Sender: FDA-Public Use
  Company Number: PHHY2011ES27108

PATIENT
  Age: 76 Year
  Sex: Female

DRUGS (6)
  1. VENLAFAXINE HCL [Interacting]
     Indication: ANTIDEPRESSANT THERAPY
     Dosage: 75 MG, PER DAY
     Dates: start: 20090510
  2. OXCARBAZEPINE [Interacting]
     Dosage: 600 MG, PER DAY
     Route: 048
     Dates: start: 20091201, end: 20110214
  3. OMEPRAZOLE [Concomitant]
     Route: 048
  4. LOSARTAN [Concomitant]
  5. AMLODIPINE [Concomitant]
     Dosage: UNK
     Route: 048
     Dates: start: 20090510
  6. ESIDRIX [Suspect]
     Dosage: 20 MG, PER DAY
     Dates: start: 20090722, end: 20110214

REACTIONS (7)
  - BLOOD CREATININE INCREASED [None]
  - HYPONATRAEMIA [None]
  - DRUG INTERACTION [None]
  - HAEMOGLOBIN DECREASED [None]
  - HAEMATOCRIT DECREASED [None]
  - DYSPNOEA [None]
  - OEDEMA [None]
